FAERS Safety Report 18821917 (Version 1)
Quarter: 2021Q1

REPORT INFORMATION
  Report Type: Report from Study
  Country: TW (occurrence: TW)
  Receive Date: 20210202
  Receipt Date: 20210202
  Transmission Date: 20210419
  Serious: Yes (Hospitalization)
  Sender: FDA-Public Use
  Company Number: TW-ROCHE-2756487

PATIENT
  Age: 67 Year
  Sex: Male
  Weight: 80 kg

DRUGS (6)
  1. OBINUTUZUMAB. [Suspect]
     Active Substance: OBINUTUZUMAB
     Dosage: DOSAGE CHANGE
     Route: 042
     Dates: start: 20210123
  2. ZANUBRUTINIB [Suspect]
     Active Substance: ZANUBRUTINIB
     Dosage: MOST RECENT DOSE ON 20/JAN/2021?ON HOLD NOW
     Route: 048
     Dates: start: 20210113
  3. ZANUBRUTINIB [Suspect]
     Active Substance: ZANUBRUTINIB
     Dosage: DOSAGE CHANGE
     Route: 048
     Dates: start: 20210123
  4. ZANUBRUTINIB [Suspect]
     Active Substance: ZANUBRUTINIB
     Route: 048
     Dates: start: 20210106, end: 20210112
  5. OBINUTUZUMAB. [Suspect]
     Active Substance: OBINUTUZUMAB
     Indication: B-CELL LYMPHOMA
     Dosage: INTRAVENOUSLY ON DAYS 1, 8, AND 15 OF CYCLE 1, THEN 1,000 MG ON DAY 1 OF CYCLES 2 TO 6, THEN 1,000 M
     Route: 042
     Dates: start: 20201230
  6. ZANUBRUTINIB [Suspect]
     Active Substance: ZANUBRUTINIB
     Indication: B-CELL LYMPHOMA
     Route: 048
     Dates: start: 20201230, end: 20210105

REACTIONS (1)
  - Herpes zoster [Not Recovered/Not Resolved]

NARRATIVE: CASE EVENT DATE: 20210123
